FAERS Safety Report 9952627 (Version 1)
Quarter: 2014Q1

REPORT INFORMATION
  Report Type: Report from Study
  Country: US (occurrence: US)
  Receive Date: 20140304
  Receipt Date: 20140304
  Transmission Date: 20141002
  Serious: Yes (Hospitalization)
  Sender: FDA-Public Use
  Company Number: US-ABBVIE-13P-163-1071034-00

PATIENT
  Sex: Female

DRUGS (2)
  1. HUMIRA [Suspect]
     Indication: CROHN^S DISEASE
     Dosage: EVERY TWO WEEKS
     Dates: start: 201210
  2. HUMIRA [Suspect]
     Dates: start: 201303

REACTIONS (1)
  - Crohn^s disease [Unknown]
